FAERS Safety Report 10296323 (Version 1)
Quarter: 2014Q3

REPORT INFORMATION
  Report Type: Spontaneous
  Country: US (occurrence: None)
  Receive Date: 20140708
  Receipt Date: 20140708
  Transmission Date: 20150326
  Serious: Yes (Hospitalization)
  Sender: FDA-Public Use
  Company Number: 2421253

PATIENT
  Age: 42 Year
  Sex: Male

DRUGS (2)
  1. METRONIDAZOLE. [Suspect]
     Active Substance: METRONIDAZOLE
     Indication: BACTERAEMIA
  2. CIPROFLOXACIN. [Concomitant]
     Active Substance: CIPROFLOXACIN

REACTIONS (6)
  - Substance-induced psychotic disorder [None]
  - Mental status changes [None]
  - Agitation [None]
  - Delirium [None]
  - Suicidal ideation [None]
  - Hallucination [None]
